FAERS Safety Report 25399516 (Version 2)
Quarter: 2025Q2

REPORT INFORMATION
  Report Type: Report from Study
  Country: JP (occurrence: JP)
  Receive Date: 20250605
  Receipt Date: 20250610
  Transmission Date: 20250717
  Serious: Yes (Death, Hospitalization, Other)
  Sender: TAKEDA
  Company Number: JP-TAKEDA-2025TJP005376

PATIENT
  Age: 60 Year
  Sex: Male
  Weight: 50.7 kg

DRUGS (9)
  1. MARIBAVIR [Suspect]
     Active Substance: MARIBAVIR
     Indication: Cytomegalovirus infection
     Dosage: 800 MILLIGRAM, QD
     Dates: start: 20250130, end: 20250325
  2. TACROLIMUS [Concomitant]
     Active Substance: TACROLIMUS
  3. ACYCLOVIR [Concomitant]
     Active Substance: ACYCLOVIR
  4. CRESEMBA [Concomitant]
     Active Substance: ISAVUCONAZONIUM SULFATE
  5. SULFAMETHOXAZOLE\TRIMETHOPRIM [Concomitant]
     Active Substance: SULFAMETHOXAZOLE\TRIMETHOPRIM
  6. LEVOFLOXACIN HEMIHYDRATE [Concomitant]
     Active Substance: LEVOFLOXACIN
  7. PIPERACILLIN SODIUM\TAZOBACTAM SODIUM [Concomitant]
     Active Substance: PIPERACILLIN SODIUM\TAZOBACTAM SODIUM
  8. TEICOPLANIN [Concomitant]
     Active Substance: TEICOPLANIN
  9. CANCIDAS [Concomitant]
     Active Substance: CASPOFUNGIN ACETATE

REACTIONS (3)
  - Acute myeloid leukaemia [Fatal]
  - Post transplant lymphoproliferative disorder [Recovering/Resolving]
  - Off label use [Unknown]

NARRATIVE: CASE EVENT DATE: 20250130
